FAERS Safety Report 10396223 (Version 1)
Quarter: 2014Q1

REPORT INFORMATION
  Report Type: Spontaneous
  Country: US (occurrence: None)
  Receive Date: 20130815
  Receipt Date: 20130815
  Transmission Date: 20141002
  Serious: Yes (Hospitalization)
  Sender: FDA-Public Use
  Company Number: ADR-2006-2729

PATIENT
  Sex: Female

DRUGS (1)
  1. LIORESAL INTRATHECAL (BACLOFEN INJECTION) [Suspect]
     Indication: MUSCLE SPASTICITY

REACTIONS (10)
  - Hypertonia [None]
  - Central nervous system infection [None]
  - Muscle spasticity [None]
  - Implant site irritation [None]
  - Implant site infection [None]
  - Pyrexia [None]
  - Implant site pain [None]
  - Escherichia test positive [None]
  - Implant site erosion [None]
  - Infusion site erythema [None]
